FAERS Safety Report 14796222 (Version 1)
Quarter: 2018Q2

REPORT INFORMATION
  Report Type: Report from Study
  Country: US (occurrence: US)
  Receive Date: 20180423
  Receipt Date: 20180423
  Transmission Date: 20180711
  Serious: No
  Sender: FDA-Public Use
  Company Number: US-AMGEN-USASL2017191119

PATIENT
  Age: 61 Year
  Sex: Male
  Weight: 73.16 kg

DRUGS (3)
  1. REPATHA [Suspect]
     Active Substance: EVOLOCUMAB
     Indication: TYPE V HYPERLIPIDAEMIA
  2. REPATHA [Suspect]
     Active Substance: EVOLOCUMAB
     Indication: HYPERCHOLESTEROLAEMIA
     Dosage: 140 MG, Q2WK
     Route: 058
     Dates: start: 201710
  3. REPATHA [Suspect]
     Active Substance: EVOLOCUMAB
     Indication: ARTERIOSCLEROSIS

REACTIONS (1)
  - Alopecia [Unknown]

NARRATIVE: CASE EVENT DATE: 2017
